FAERS Safety Report 9793264 (Version 1)
Quarter: 2014Q1

REPORT INFORMATION
  Report Type: Report from Study
  Country: US (occurrence: US)
  Receive Date: 20140102
  Receipt Date: 20140102
  Transmission Date: 20141002
  Serious: Yes (Other)
  Sender: FDA-Public Use
  Company Number: US-ABBVIE-13P-163-1183585-00

PATIENT
  Sex: Male

DRUGS (2)
  1. ANDROGEL [Suspect]
     Indication: BLOOD TESTOSTERONE DECREASED
     Dates: start: 2012
  2. INFLUENZA [Suspect]
     Indication: IMMUNISATION

REACTIONS (13)
  - Vomiting [Unknown]
  - Decreased appetite [Unknown]
  - Dysphagia [Unknown]
  - Weight decreased [Unknown]
  - Pyrexia [Unknown]
  - Chills [Unknown]
  - Fatigue [Unknown]
  - Bedridden [Unknown]
  - Fatigue [Unknown]
  - Dizziness [Unknown]
  - Chromaturia [Unknown]
  - Hepatitis [Unknown]
  - Malaise [Unknown]
